FAERS Safety Report 5278240-1 (Version None)
Quarter: 2007Q1

REPORT INFORMATION
  Report Type: 
  Country: None (occurrence: None)
  Receive Date: 20061207
  Receipt Date: 20060127
  Transmission Date: 20070707
  Serious: No
  Sender: FDA-Public Use
  Company Number: 2006UW00724

PATIENT
  Age: 65 Year
  Sex: Female
  Weight: 45.359 kg

DRUGS (12)
  1. TOPROL-XL [Suspect]
     Indication: HYPERTENSION
     Dosage: 25 MG PO
     Route: 048
     Dates: start: 20051005
  2. VITAMIN CAP [Concomitant]
  3. FUROSEMIDE [Concomitant]
  4. COREG [Concomitant]
  5. ANTACID TAB [Concomitant]
  6. ACETYLSALICYLIC ACID SRT [Concomitant]
  7. COENZYME Q10 [Concomitant]
  8. VITAMIN B6 [Concomitant]
  9. VITAMIN B-12 [Concomitant]
  10. HAWTHORNE BERRIES [Concomitant]
  11. FISH OIL [Concomitant]
  12. PAXIL [Concomitant]

REACTIONS (1)
  - CARDIAC FAILURE CONGESTIVE [None]
